FAERS Safety Report 8560055-X (Version None)
Quarter: 2012Q3

REPORT INFORMATION
  Report Type: 
  Country: None (occurrence: None)
  Receive Date: 20120802
  Receipt Date: 20120730
  Transmission Date: 20120928
  Serious: No
  Sender: FDA-Public Use
  Company Number: US-PFIZER INC-2012168074

PATIENT
  Sex: Male
  Weight: 99.7 kg

DRUGS (18)
  1. DEXAMETHASONE [Concomitant]
     Indication: BRAIN NEOPLASM
     Dosage: 4 MG, 2X/DAY
     Dates: start: 20120525
  2. ASCORBIC ACID [Concomitant]
  3. SUTENT [Suspect]
     Indication: METASTATIC RENAL CELL CARCINOMA
     Dosage: 50 MG, CYCLE FOR 42 DAYS  (DAILY)
     Dates: start: 20120618, end: 20120703
  4. CALCIUM CITRATE [Concomitant]
  5. TYLENOL (CAPLET) [Concomitant]
     Indication: SLEEP DISORDER
  6. SUTENT [Suspect]
     Indication: METASTASES TO LUNG
     Dosage: 37.5 MG, UNK
     Dates: start: 20120720
  7. CO-Q-10 [Concomitant]
  8. LOSARTAN [Concomitant]
     Dosage: 25 MG, 1X/DAY
  9. DEXAMETHASONE [Concomitant]
     Dosage: 2 MG, 1X/DAY
  10. ASPIRIN [Concomitant]
     Dosage: 325 MG, UNK
  11. CARVEDILOL [Concomitant]
     Dosage: 3.25 MG, 2X/DAY
  12. TYLENOL (CAPLET) [Concomitant]
     Indication: PYREXIA
  13. ALLOPURINOL [Concomitant]
     Indication: GOUT
     Dosage: 300 MG, UNK
  14. POTASSIUM [Concomitant]
  15. SUTENT [Suspect]
     Indication: METASTASES TO CENTRAL NERVOUS SYSTEM
  16. FISH OIL [Concomitant]
  17. SIMVASTATIN [Concomitant]
  18. LASIX [Concomitant]
     Indication: OEDEMA PERIPHERAL

REACTIONS (11)
  - FATIGUE [None]
  - PAIN IN EXTREMITY [None]
  - WEIGHT DECREASED [None]
  - DECREASED APPETITE [None]
  - PYREXIA [None]
  - EPISTAXIS [None]
  - ASTHENIA [None]
  - MUSCLE SPASMS [None]
  - PLATELET COUNT DECREASED [None]
  - NEUROPATHY PERIPHERAL [None]
  - DYSPNOEA [None]
